FAERS Safety Report 10442083 (Version 1)
Quarter: 2014Q3

REPORT INFORMATION
  Report Type: Spontaneous
  Country: FR (occurrence: FR)
  Receive Date: 20140909
  Receipt Date: 20140909
  Transmission Date: 20150326
  Serious: Yes (Hospitalization)
  Sender: FDA-Public Use
  Company Number: FR-PFIZER INC-2014244226

PATIENT
  Age: 61 Year
  Sex: Male

DRUGS (11)
  1. AMLOR [Concomitant]
     Active Substance: AMLODIPINE BESYLATE
  2. COVERSYL [Concomitant]
     Active Substance: PERINDOPRIL
  3. CLOPIDOGREL [Concomitant]
     Active Substance: CLOPIDOGREL BISULFATE
     Dosage: UNK
     Dates: end: 201408
  4. INEXIUM [Concomitant]
     Active Substance: ESOMEPRAZOLE
  5. BURINEX [Concomitant]
     Active Substance: BUMETANIDE
  6. KARDEGIC [Concomitant]
     Active Substance: ASPIRIN LYSINE
  7. TEMERIT [Concomitant]
     Active Substance: NEBIVOLOL
  8. SUTENT [Suspect]
     Active Substance: SUNITINIB MALATE
     Indication: RENAL CANCER
     Dosage: 37.5 MG CYCLIC: DAILY, 2 WEEKS OUT OF 3
     Route: 048
     Dates: start: 201402, end: 20140810
  9. EZETROL [Concomitant]
     Active Substance: EZETIMIBE
  10. CORDARONE [Concomitant]
     Active Substance: AMIODARONE HYDROCHLORIDE
  11. PRIMPERAN [Concomitant]
     Active Substance: METOCLOPRAMIDE HYDROCHLORIDE

REACTIONS (1)
  - Acute coronary syndrome [Recovered/Resolved]

NARRATIVE: CASE EVENT DATE: 20140810
